FAERS Safety Report 13574658 (Version 3)
Quarter: 2017Q2

REPORT INFORMATION
  Report Type: Report from Study
  Country: ZA (occurrence: ZA)
  Receive Date: 20170523
  Receipt Date: 20170609
  Transmission Date: 20170830
  Serious: Yes (Hospitalization, Other)
  Sender: FDA-Public Use
  Company Number: ZA-BAYER-2017-090340

PATIENT
  Age: 76 Year
  Sex: Female

DRUGS (16)
  1. BETAFERON [Suspect]
     Active Substance: INTERFERON BETA-1B
     Indication: MULTIPLE SCLEROSIS
     Dosage: UNK
     Dates: start: 20050530
  2. METHYLPREDNISOLONE. [Concomitant]
     Active Substance: METHYLPREDNISOLONE
     Indication: STEROID THERAPY
     Dosage: UNK
     Dates: start: 20170220, end: 20170223
  3. METHYLPREDNISOLONE. [Concomitant]
     Active Substance: METHYLPREDNISOLONE
     Indication: STEROID THERAPY
     Dosage: UNK
     Dates: start: 201608
  4. URIZONE [Concomitant]
     Indication: ESCHERICHIA URINARY TRACT INFECTION
     Dates: start: 201702, end: 201702
  5. ELTROXIN [Concomitant]
     Active Substance: LEVOTHYROXINE
     Indication: HYPOTHYROIDISM
  6. VITAMIN D [Concomitant]
     Active Substance: CHOLECALCIFEROL
     Indication: NUTRITIONAL SUPPLEMENTATION
     Dosage: UNK
     Dates: start: 20151105
  7. METHYLPREDNISOLONE. [Concomitant]
     Active Substance: METHYLPREDNISOLONE
     Indication: STEROID THERAPY
     Dosage: UNK
     Dates: start: 20150328, end: 20150502
  8. CIPROBAY [CIPROFLOXACIN] [Concomitant]
     Indication: URINARY TRACT INFECTION
     Dates: start: 201608
  9. BETAFERON [Suspect]
     Active Substance: INTERFERON BETA-1B
     Indication: MULTIPLE SCLEROSIS
     Dosage: 8 MIU, UNK
     Dates: start: 20050503
  10. NEXIAM [Concomitant]
     Active Substance: ESOMEPRAZOLE
     Dates: start: 20150428
  11. ESOMEPRAZOLE [Concomitant]
     Active Substance: ESOMEPRAZOLE
     Dosage: 20 MG, QD
     Dates: start: 20151022
  12. TRAMACET [Concomitant]
     Active Substance: ACETAMINOPHEN\TRAMADOL
     Indication: PAIN
     Dates: start: 20151022
  13. FERRIMED [Concomitant]
     Indication: IRON DEFICIENCY ANAEMIA
     Dates: start: 20151022
  14. METHYLPREDNISOLONE. [Concomitant]
     Active Substance: METHYLPREDNISOLONE
     Indication: STEROID THERAPY
     Dosage: UNK
     Dates: start: 20151019, end: 20151022
  15. URIZONE [Concomitant]
     Indication: ESCHERICHIA URINARY TRACT INFECTION
     Dates: start: 201608
  16. PREDNISONE. [Concomitant]
     Active Substance: PREDNISONE
     Indication: STEROID THERAPY
     Dates: start: 20151023, end: 20151106

REACTIONS (23)
  - Multiple sclerosis relapse [Unknown]
  - Multiple sclerosis relapse [Unknown]
  - Iron deficiency anaemia [Unknown]
  - Lumbar spinal stenosis [Not Recovered/Not Resolved]
  - Pain in extremity [Not Recovered/Not Resolved]
  - Thyroid function test abnormal [Unknown]
  - Dysarthria [Unknown]
  - Spinal osteoarthritis [Not Recovered/Not Resolved]
  - Vomiting [Unknown]
  - Hemiparesis [Unknown]
  - Urinary tract infection [Unknown]
  - Hypotension [Not Recovered/Not Resolved]
  - Sciatica [Not Recovered/Not Resolved]
  - Balance disorder [Unknown]
  - Diabetes mellitus [Not Recovered/Not Resolved]
  - Multiple sclerosis relapse [Unknown]
  - Nerve root compression [Not Recovered/Not Resolved]
  - Chest pain [Not Recovered/Not Resolved]
  - Nausea [Unknown]
  - Gait disturbance [Unknown]
  - Myelitis [Unknown]
  - Band sensation [Unknown]
  - Pain in extremity [Unknown]

NARRATIVE: CASE EVENT DATE: 201502
